FAERS Safety Report 25320807 (Version 1)
Quarter: 2025Q2

REPORT INFORMATION
  Report Type: Spontaneous
  Country: US (occurrence: US)
  Receive Date: 20250515
  Receipt Date: 20250515
  Transmission Date: 20250717
  Serious: Yes (Hospitalization, Other)
  Sender: SANOFI AVENTIS
  Company Number: US-SA-2025SA136074

PATIENT
  Age: 11 Year
  Sex: Female
  Weight: 34.3 kg

DRUGS (1)
  1. BELUMOSUDIL MESYLATE [Suspect]
     Active Substance: BELUMOSUDIL MESYLATE
     Indication: Chronic graft versus host disease in lung
     Dosage: 200 MG, QD
     Route: 048
     Dates: start: 20250402

REACTIONS (9)
  - Pneumonia [Unknown]
  - Rhinorrhoea [Unknown]
  - Pyrexia [Unknown]
  - Productive cough [Unknown]
  - Condition aggravated [Unknown]
  - Headache [Unknown]
  - Vomiting [Unknown]
  - Metapneumovirus infection [Unknown]
  - Product use issue [Unknown]

NARRATIVE: CASE EVENT DATE: 20250402
